FAERS Safety Report 12249139 (Version 1)
Quarter: 2016Q2

REPORT INFORMATION
  Report Type: Spontaneous
  Country: FR (occurrence: FR)
  Receive Date: 20160408
  Receipt Date: 20160408
  Transmission Date: 20160815
  Serious: Yes (Death, Hospitalization)
  Sender: FDA-Public Use
  Company Number: FR-MYLANLABS-2016M1014509

PATIENT

DRUGS (3)
  1. FLUOROURACIL. [Suspect]
     Active Substance: FLUOROURACIL
     Indication: ADJUVANT THERAPY
     Dosage: 2400 MG/M2
     Route: 041
  2. OXALIPLATIN. [Concomitant]
     Active Substance: OXALIPLATIN
     Indication: ADJUVANT THERAPY
     Dosage: 85 MG/M2
     Route: 042
  3. FOLINIC ACID [Concomitant]
     Active Substance: LEUCOVORIN
     Indication: ADJUVANT THERAPY
     Dosage: 200 MG/M2
     Route: 042

REACTIONS (10)
  - Hyperlactacidaemia [Fatal]
  - Septic shock [Fatal]
  - Multiple organ dysfunction syndrome [Fatal]
  - Metabolic acidosis [Fatal]
  - Mucosal inflammation [Fatal]
  - Coagulopathy [Fatal]
  - Hepatocellular injury [Fatal]
  - Cardiac arrest [Fatal]
  - Intracranial haematoma [Fatal]
  - Bicytopenia [Fatal]
